FAERS Safety Report 8103439-6 (Version None)
Quarter: 2012Q1

REPORT INFORMATION
  Report Type: 
  Country: None (occurrence: None)
  Receive Date: 20120201
  Receipt Date: 20120119
  Transmission Date: 20120608
  Serious: Yes (Hospitalization)
  Sender: FDA-Public Use
  Company Number: US-UCBSA-048871

PATIENT
  Age: 50 Year
  Sex: Female

DRUGS (2)
  1. CIMZIA [Suspect]
     Route: 058
  2. METHOTREXATE [Concomitant]

REACTIONS (2)
  - LOCALISED INFECTION [None]
  - GASTROENTERITIS VIRAL [None]
